FAERS Safety Report 7580978-8 (Version None)
Quarter: 2011Q2

REPORT INFORMATION
  Report Type: 
  Country: None (occurrence: None)
  Receive Date: 20110629
  Receipt Date: 20110619
  Transmission Date: 20111010
  Serious: Yes (Hospitalization)
  Sender: FDA-Public Use
  Company Number: US-SANOFI-AVENTIS-2011SA040191

PATIENT
  Sex: Male

DRUGS (2)
  1. LANTUS [Suspect]
     Indication: TYPE 2 DIABETES MELLITUS
     Dosage: 10-15 UNITS DAILY
     Route: 058
     Dates: start: 20100101
  2. SOLOSTAR [Suspect]
     Indication: TYPE 2 DIABETES MELLITUS

REACTIONS (5)
  - CORONARY ARTERIAL STENT INSERTION [None]
  - BLOOD GLUCOSE DECREASED [None]
  - INSOMNIA [None]
  - HYPOGLYCAEMIA [None]
  - RENAL IMPAIRMENT [None]
